FAERS Safety Report 9665270 (Version 2)
Quarter: 2013Q4

REPORT INFORMATION
  Report Type: Spontaneous
  Country: US (occurrence: US)
  Receive Date: 20131101
  Receipt Date: 20131106
  Transmission Date: 20140711
  Serious: No
  Sender: FDA-Public Use
  Company Number: US-PFIZER INC-2013309076

PATIENT
  Age: 79 Year
  Sex: Female
  Weight: 79.37 kg

DRUGS (3)
  1. PENICILLIN NOS [Suspect]
     Dosage: UNK
  2. VITAMIN D [Concomitant]
  3. ZOCOR [Concomitant]

REACTIONS (1)
  - Drug hypersensitivity [Unknown]
